FAERS Safety Report 8806434 (Version 1)
Quarter: 2012Q4

REPORT INFORMATION
  Report Type: 
  Country: US (occurrence: US)
  Receive Date: 20120925
  Receipt Date: 20120925
  Transmission Date: 20130627
  Serious: Yes (Other)
  Sender: FDA-Public Use
  Company Number: US-BAYER-2012-098379

PATIENT
  Age: 50 Year
  Sex: Female
  Weight: 71 kg

DRUGS (5)
  1. BETASERON [Suspect]
     Dosage: 0.3 mg, QOD
     Route: 058
  2. BENICAR [Concomitant]
     Dosage: 5 mg, UNK
  3. ASA [Concomitant]
     Dosage: 81 mg, UNK
  4. ALBUTEROL [Concomitant]
     Dosage: 90 ?g, UNK
  5. GEMFIBROZIL [Concomitant]
     Dosage: 600 mg, UNK

REACTIONS (6)
  - Hypersensitivity [Unknown]
  - Swelling face [Unknown]
  - Skin discolouration [Unknown]
  - Rash [Unknown]
  - Dyspnoea [Unknown]
  - Pruritus generalised [Unknown]
